FAERS Safety Report 18088280 (Version 2)
Quarter: 2020Q3

REPORT INFORMATION
  Report Type: Spontaneous
  Country: CZ (occurrence: CZ)
  Receive Date: 20200729
  Receipt Date: 20200806
  Transmission Date: 20201103
  Serious: Yes (Life-Threatening, Hospitalization, Other)
  Sender: FDA-Public Use
  Company Number: CZ-VALIDUS PHARMACEUTICALS LLC-CZ-2020VAL000638

PATIENT

DRUGS (5)
  1. CLINDAMYCIN PHOSPHATE. [Concomitant]
     Active Substance: CLINDAMYCIN PHOSPHATE
     Indication: PRODUCT USED FOR UNKNOWN INDICATION
     Dosage: UNK
  2. CEFOTAXIME SODIUM [Suspect]
     Active Substance: CEFOTAXIME SODIUM
     Indication: ENDOMETRITIS
     Dosage: UNK
     Route: 065
  3. GENTAMICIN SULFATE. [Concomitant]
     Active Substance: GENTAMICIN SULFATE
     Indication: PRODUCT USED FOR UNKNOWN INDICATION
     Dosage: UNK
  4. AMOXICILLIN W/CLAVULANIC ACID [Suspect]
     Active Substance: AMOXICILLIN\CLAVULANIC ACID
     Indication: TOXIC SHOCK SYNDROME
     Dosage: UNK
     Route: 042
  5. METHYLPREDNISOLONE. [Suspect]
     Active Substance: METHYLPREDNISOLONE
     Indication: TOXIC SHOCK SYNDROME
     Dosage: UNK
     Route: 065

REACTIONS (12)
  - Hyperpyrexia [Recovering/Resolving]
  - Pulmonary embolism [Recovering/Resolving]
  - Petechiae [Recovering/Resolving]
  - Rash [Recovering/Resolving]
  - Blood blister [Recovering/Resolving]
  - Erythema [Recovering/Resolving]
  - Pulmonary oedema [Recovering/Resolving]
  - Toxic epidermal necrolysis [Recovering/Resolving]
  - Tachypnoea [Recovering/Resolving]
  - General physical health deterioration [Recovering/Resolving]
  - Skin lesion [Recovering/Resolving]
  - Rash macular [Recovering/Resolving]
